FAERS Safety Report 19231825 (Version 1)
Quarter: 2021Q2

REPORT INFORMATION
  Report Type: Spontaneous
  Country: SG (occurrence: SG)
  Receive Date: 20210507
  Receipt Date: 20210507
  Transmission Date: 20210717
  Serious: Yes (Other)
  Sender: FDA-Public Use
  Company Number: SG-AUROBINDO-AUR-APL-2021-018498

PATIENT
  Age: 41 Year
  Sex: Female

DRUGS (5)
  1. AMOXICILLIN+CLAVULANIC ACID [Suspect]
     Active Substance: AMOXICILLIN\CLAVULANIC ACID
     Indication: ENTEROBACTER INFECTION
  2. MEFENAMIC ACID. [Suspect]
     Active Substance: MEFENAMIC ACID
     Indication: TYPE IV HYPERSENSITIVITY REACTION
     Dosage: UNK
     Route: 048
  3. AMOXICILLIN+CLAVULANIC ACID [Suspect]
     Active Substance: AMOXICILLIN\CLAVULANIC ACID
     Indication: STAPHYLOCOCCAL INFECTION
  4. MEFENAMIC ACID. [Suspect]
     Active Substance: MEFENAMIC ACID
     Indication: TENDERNESS
  5. AMOXICILLIN+CLAVULANIC ACID [Suspect]
     Active Substance: AMOXICILLIN\CLAVULANIC ACID
     Indication: TYPE IV HYPERSENSITIVITY REACTION
     Dosage: UNK
     Route: 048

REACTIONS (1)
  - Drug ineffective [Unknown]
